FAERS Safety Report 21208168 (Version 2)
Quarter: 2025Q2

REPORT INFORMATION
  Report Type: Report from Study
  Country: GB (occurrence: GB)
  Receive Date: 20220812
  Receipt Date: 20250429
  Transmission Date: 20250717
  Serious: Yes (Other)
  Sender: ROCHE
  Company Number: GB-ROCHE-3118457

PATIENT
  Sex: Female

DRUGS (1)
  1. TOCILIZUMAB [Suspect]
     Active Substance: TOCILIZUMAB
     Indication: Rheumatoid arthritis
     Dosage: ONE ONCE WEEKLY
     Route: 058
     Dates: start: 20210224

REACTIONS (2)
  - Product storage error [Unknown]
  - COVID-19 [Unknown]
